FAERS Safety Report 4354258-8 (Version None)
Quarter: 2004Q2

REPORT INFORMATION
  Report Type: 
  Country: None (occurrence: None)
  Receive Date: 20040506
  Receipt Date: 20040405
  Transmission Date: 20050107
  Serious: Yes (Life-Threatening, Hospitalization)
  Sender: FDA-Public Use
  Company Number: US-ROCHE-366030

PATIENT
  Age: 61 Year
  Sex: Female
  Weight: 70 kg

DRUGS (5)
  1. CAPECITABINE [Suspect]
     Route: 065
  2. PLACEBO [Suspect]
     Route: 042
     Dates: start: 20010726, end: 20010824
  3. FLUOROURACIL [Suspect]
     Route: 042
  4. IRINOTECAN [Suspect]
     Route: 065
  5. LEUCOVORIN CALCIUM [Suspect]
     Route: 065

REACTIONS (4)
  - DEEP VEIN THROMBOSIS [None]
  - ILIAC ARTERY THROMBOSIS [None]
  - PHLEBOTHROMBOSIS [None]
  - PULMONARY EMBOLISM [None]
